FAERS Safety Report 16513932 (Version 1)
Quarter: 2019Q3

REPORT INFORMATION
  Report Type: Spontaneous
  Country: US (occurrence: US)
  Receive Date: 20190701
  Receipt Date: 20190701
  Transmission Date: 20191004
  Serious: Yes (Other)
  Sender: FDA-Public Use
  Company Number: US-ROCHE-2249738

PATIENT
  Sex: Male
  Weight: 70.37 kg

DRUGS (3)
  1. CLONAZEPAM. [Suspect]
     Active Substance: CLONAZEPAM
     Indication: ANXIETY
     Dosage: MYLAN PRODUCT
     Route: 065
     Dates: start: 2017
  2. KLONOPIN [Suspect]
     Active Substance: CLONAZEPAM
     Indication: ANXIETY
     Route: 065
     Dates: start: 20180109
  3. CLONAZEPAM. [Suspect]
     Active Substance: CLONAZEPAM
     Route: 065

REACTIONS (1)
  - Withdrawal syndrome [Unknown]
